FAERS Safety Report 9467641 (Version 1)
Quarter: 2013Q3

REPORT INFORMATION
  Report Type: Report from Study
  Country: MX (occurrence: MX)
  Receive Date: 20130821
  Receipt Date: 20130821
  Transmission Date: 20140515
  Serious: Yes (Death)
  Sender: FDA-Public Use
  Company Number: PHHY2013MX090117

PATIENT
  Age: 80 Year
  Sex: Male

DRUGS (2)
  1. ONBREZ [Suspect]
     Indication: PULMONARY FIBROSIS
     Dosage: 150 UG, BID
     Dates: start: 201207
  2. ONBREZ [Suspect]
     Indication: OFF LABEL USE

REACTIONS (2)
  - Pulmonary fibrosis [Fatal]
  - Inappropriate schedule of drug administration [Unknown]
